FAERS Safety Report 8861536 (Version 1)
Quarter: 2012Q4

REPORT INFORMATION
  Report Type: Spontaneous
  Country: US (occurrence: None)
  Receive Date: 20121022
  Receipt Date: 20121022
  Transmission Date: 20130627
  Serious: Yes (Other)
  Sender: FDA-Public Use
  Company Number: JPI-P-025566

PATIENT
  Age: 38 Year
  Sex: Female

DRUGS (10)
  1. XYREM (500 MILLIGRAM/MILLILITERS, SOLUTION) (SODIUM OXYBATE) [Suspect]
     Indication: CATAPLEXY
     Dosage: 8 gm (4 gm, 2 in 1 d), oral
     Route: 048
     Dates: start: 20091016, end: 2009
  2. XYREM (500 MILLIGRAM/MILLILITERS, SOLUTION) (SODIUM OXYBATE) [Suspect]
     Indication: CATAPLEXY
     Dosage: 4.5 gm at hs and 3.5 gm 3 hrs later, oral
     Route: 048
     Dates: start: 20091201
  3. ALBUTEROL [Concomitant]
  4. ALPRAZOLAM [Concomitant]
  5. CARISOPRODOL [Concomitant]
  6. METHYLPHENIDATE HYDROCHLORIDE [Concomitant]
  7. MULTIVITAMINS [Concomitant]
  8. LANSOPRAZOLE [Concomitant]
  9. QUETIAPINE FUMARATE [Concomitant]
  10. VALACICLOVIR [Concomitant]

REACTIONS (22)
  - Dizziness [None]
  - Electroencephalogram abnormal [None]
  - Cognitive disorder [None]
  - Convulsion [None]
  - Saliva altered [None]
  - Nasal dryness [None]
  - Menorrhagia [None]
  - Poor quality sleep [None]
  - Tension [None]
  - Memory impairment [None]
  - Affect lability [None]
  - Feeling abnormal [None]
  - Formication [None]
  - Oropharyngeal pain [None]
  - Retching [None]
  - Vomiting [None]
  - Electrolyte imbalance [None]
  - White blood cell count decreased [None]
  - Haemangioma of liver [None]
  - Dyspepsia [None]
  - Fatigue [None]
  - Hypersomnia [None]
